FAERS Safety Report 25260587 (Version 1)
Quarter: 2025Q2

REPORT INFORMATION
  Report Type: Spontaneous
  Country: US (occurrence: US)
  Receive Date: 20250501
  Receipt Date: 20250501
  Transmission Date: 20250716
  Serious: Yes (Death, Other)
  Sender: NOVO NORDISK
  Company Number: US-NOVOPROD-1407025

PATIENT
  Sex: Male

DRUGS (1)
  1. NOVOLOG [Suspect]
     Active Substance: INSULIN ASPART
     Indication: Diabetes mellitus
     Route: 058

REACTIONS (3)
  - Lung cancer metastatic [Fatal]
  - Metastases to central nervous system [Unknown]
  - Vein disorder [Unknown]
